FAERS Safety Report 6208182-6 (Version None)
Quarter: 2009Q2

REPORT INFORMATION
  Report Type: 
  Country: None (occurrence: None)
  Receive Date: 20090529
  Receipt Date: 20090519
  Transmission Date: 20091009
  Serious: Yes (Other)
  Sender: FDA-Public Use
  Company Number: PHHY2009AU16659

PATIENT
  Sex: Female

DRUGS (10)
  1. EXJADE [Suspect]
     Indication: IRON OVERLOAD
     Dosage: UNK
     Route: 048
     Dates: start: 20080219
  2. FOLIC ACID [Concomitant]
     Dosage: 5 MG, QD
  3. SORBID [Concomitant]
     Dosage: 10 MG, QD
  4. SIGMAX [Concomitant]
     Dosage: 62.5 MG, QD
  5. UREMIDE [Concomitant]
     Dosage: 80 MG, QD
  6. MINAX [Concomitant]
     Dosage: 50 MG, BID
  7. MICARDIS [Concomitant]
     Dosage: 80 MG, UNK
  8. ROBAXIN [Concomitant]
     Dosage: 25 MG, QD
  9. CITALOPRAM HYDROBROMIDE [Concomitant]
     Dosage: 10 MG, UNK
  10. AMIODARONE HCL [Concomitant]
     Dosage: 200 MG, QD

REACTIONS (1)
  - ALOPECIA [None]
